FAERS Safety Report 20841029 (Version 1)
Quarter: 2022Q2

REPORT INFORMATION
  Report Type: Spontaneous
  Country: US (occurrence: US)
  Receive Date: 20220517
  Receipt Date: 20220517
  Transmission Date: 20220721
  Serious: No
  Sender: FDA-Public Use
  Company Number: US-PFIZER INC-202101721761

PATIENT
  Age: 73 Year
  Sex: Female
  Weight: 48.08 kg

DRUGS (4)
  1. DICLOFENAC SODIUM\MISOPROSTOL [Suspect]
     Active Substance: DICLOFENAC SODIUM\MISOPROSTOL
     Indication: Arthritis
     Dosage: UNK
     Route: 048
  2. FUROSEMIDE [Concomitant]
     Active Substance: FUROSEMIDE
     Indication: Joint swelling
  3. PROLIA [Concomitant]
     Active Substance: DENOSUMAB
     Dosage: UNK (TWICE A YEAR)
  4. TRAMADOL [Concomitant]
     Active Substance: TRAMADOL

REACTIONS (2)
  - Drug ineffective [Unknown]
  - Drug hypersensitivity [Unknown]
